FAERS Safety Report 18438967 (Version 3)
Quarter: 2020Q4

REPORT INFORMATION
  Report Type: Spontaneous
  Country: US (occurrence: US)
  Receive Date: 20201029
  Receipt Date: 20201229
  Transmission Date: 20210114
  Serious: No
  Sender: FDA-Public Use
  Company Number: US-SA-2020SA299392

PATIENT

DRUGS (1)
  1. LANTUS SOLOSTAR [Suspect]
     Active Substance: INSULIN GLARGINE
     Dosage: 28 IU, QD
     Route: 065

REACTIONS (3)
  - Fall [Unknown]
  - Injection site bruising [Unknown]
  - Device operational issue [Unknown]

NARRATIVE: CASE EVENT DATE: 20201021
